FAERS Safety Report 18065824 (Version 1)
Quarter: 2020Q3

REPORT INFORMATION
  Report Type: Spontaneous
  Country: US (occurrence: US)
  Receive Date: 20200724
  Receipt Date: 20200724
  Transmission Date: 20201103
  Serious: Yes (Other)
  Sender: FDA-Public Use
  Company Number: None

PATIENT
  Age: 78 Year
  Sex: Female
  Weight: 80.3 kg

DRUGS (18)
  1. REMDESIVIR. [Suspect]
     Active Substance: REMDESIVIR
     Indication: COVID-19
     Route: 041
     Dates: start: 20200719, end: 20200723
  2. THIAMINE 100 MG [Concomitant]
     Dates: start: 20200714
  3. MIRTAZAPINE 15 MG [Concomitant]
     Active Substance: MIRTAZAPINE
     Dates: start: 20200714
  4. DEXAMETHASONE 6MG ORAL TAB [Concomitant]
     Dates: start: 20200718
  5. CITALOPRAM [Concomitant]
     Active Substance: CITALOPRAM HYDROBROMIDE
     Dates: start: 20200715
  6. NYSTATIN POWDER [Concomitant]
     Active Substance: NYSTATIN
     Dates: start: 20200717
  7. FOLIC ACID 1MG [Concomitant]
     Active Substance: FOLIC ACID
     Dates: start: 20200715
  8. CHOLECALCIFEROL 1000 UNITS PO [Concomitant]
     Dates: start: 20200715
  9. DONEPAZIL 10 MG DAILY [Concomitant]
     Dates: start: 20200715
  10. BUPROPION XL 300MG [Concomitant]
     Active Substance: BUPROPION
     Dates: start: 20200715
  11. ASPIRIN EC 81MG [Concomitant]
     Dates: start: 20200715
  12. OLANZAPINE 2.5 MG IN AM AND 5MG IN PM [Concomitant]
     Dates: start: 20200714
  13. INSULIN LISPRO [Concomitant]
     Active Substance: INSULIN LISPRO
     Dates: start: 20200715
  14. CLONIDINE 0.1 MG EVERY 12H [Concomitant]
     Dates: start: 20200714
  15. TERAZOSIN 1 MG [Concomitant]
     Dates: start: 20200714
  16. ENOXAPARIN 40 MG QC [Concomitant]
     Dates: start: 20200721
  17. ATORVASTATIN 20MG [Concomitant]
     Active Substance: ATORVASTATIN
     Dates: start: 20200715
  18. ALPRAZOLAM 0.5MG BID [Concomitant]
     Dates: start: 20200722

REACTIONS (3)
  - Infusion site extravasation [None]
  - Infusion site swelling [None]
  - Infusion site erythema [None]

NARRATIVE: CASE EVENT DATE: 20200723
